FAERS Safety Report 9092969 (Version 1)
Quarter: 2013Q1

REPORT INFORMATION
  Report Type: Spontaneous
  Country: US (occurrence: None)
  Receive Date: 20130213
  Receipt Date: 20130213
  Transmission Date: 20140127
  Serious: Yes (Life-Threatening)
  Sender: FDA-Public Use
  Company Number: None

PATIENT
  Age: 47 Year
  Sex: Male
  Weight: 114.76 kg

DRUGS (1)
  1. ZOLPIDEM [Suspect]
     Indication: INSOMNIA
     Dosage: TAKE 1 TABLET  EVERY  NIGHT @ BT  PO?DURATION: OVER 1 MONTH
     Route: 048
     Dates: start: 20130102, end: 20130210

REACTIONS (11)
  - Blood pressure diastolic increased [None]
  - Tachycardia [None]
  - Headache [None]
  - Depression [None]
  - Suicidal ideation [None]
  - Chest pain [None]
  - Palpitations [None]
  - Dyspnoea [None]
  - Condition aggravated [None]
  - Ear infection [None]
  - Refusal of treatment by patient [None]
